FAERS Safety Report 4864105-3 (Version None)
Quarter: 2005Q4

REPORT INFORMATION
  Report Type: 
  Country: None (occurrence: None)
  Receive Date: 20051219
  Receipt Date: 20051205
  Transmission Date: 20060501
  Serious: Yes (Hospitalization)
  Sender: FDA-Public Use
  Company Number: 2005165870

PATIENT
  Age: 26 Year
  Sex: Female
  Weight: 39.5 kg

DRUGS (15)
  1. DIFLUCAN [Suspect]
     Indication: FUNGAL INFECTION
     Dosage: 200 MG (200 MG, 1 IN 1 D), INTRAVENOUS
     Route: 042
     Dates: start: 20010101
  2. ARSENIC TRIOXIDE (ARSENIC TRIOXIDE) [Suspect]
     Indication: ACUTE PROMYELOCYTIC LEUKAEMIA
     Dosage: 6 MG (6 MG, 1 IN 1 D)
     Dates: start: 20020715
  3. FAMOTIDINE [Concomitant]
  4. POLYMYXIN B SULFATE (POLYMYXIN B SULFATE) [Concomitant]
  5. FUNGIZONE [Concomitant]
  6. COTRIM [Concomitant]
  7. ALLOPURINOL [Concomitant]
  8. LOXONIN (LOXOPROFEN SODIUM) [Concomitant]
  9. VANCOMYCIN HYDROCHLORIDE [Concomitant]
  10. HACHIAZULE (SODIUM BICARBONATE, SODIUM GUALENATE) [Concomitant]
  11. ELASE (DESOXYRIBONUCLEASE, FIBRINOLYSIN) [Concomitant]
  12. BIOFERMIN R (STREPTOCOCCUS FAECALIS) [Concomitant]
  13. NASEA (RAMOSETRON HYDROCHLORIDE) [Concomitant]
  14. AMIKACIN SULFATE [Concomitant]
  15. MEROPEN (MEROPENEM) [Concomitant]

REACTIONS (6)
  - ACUTE PROMYELOCYTIC LEUKAEMIA [None]
  - DRUG INTERACTION [None]
  - DYSPNOEA [None]
  - NEOPLASM RECURRENCE [None]
  - TORSADE DE POINTES [None]
  - VENTRICULAR EXTRASYSTOLES [None]
